FAERS Safety Report 16586084 (Version 2)
Quarter: 2019Q3

REPORT INFORMATION
  Report Type: Spontaneous
  Country: AU (occurrence: AU)
  Receive Date: 20190717
  Receipt Date: 20190726
  Transmission Date: 20191004
  Serious: Yes (Other)
  Sender: FDA-Public Use
  Company Number: AU-IGSA-SR10008734

PATIENT
  Age: 64 Year
  Sex: Female
  Weight: 63 kg

DRUGS (2)
  1. FLEBOGAMMA DIF [Suspect]
     Active Substance: HUMAN IMMUNOGLOBULIN G
     Indication: NON-HODGKIN^S LYMPHOMA
     Dosage: UNK
  2. FLEBOGAMMA DIF [Suspect]
     Active Substance: HUMAN IMMUNOGLOBULIN G
     Indication: IMMUNODEFICIENCY COMMON VARIABLE
     Dosage: 25 G, Q.4WK.
     Route: 042
     Dates: start: 20190625, end: 20190625

REACTIONS (6)
  - Pyrexia [Recovered/Resolved]
  - Tachypnoea [Recovered/Resolved]
  - Hypoxia [Recovered/Resolved]
  - Hypertension [Recovered/Resolved]
  - Tachycardia [Recovered/Resolved]
  - Chills [Recovered/Resolved]

NARRATIVE: CASE EVENT DATE: 20190625
